FAERS Safety Report 4469815-8 (Version None)
Quarter: 2004Q4

REPORT INFORMATION
  Report Type: 
  Country: None (occurrence: None)
  Receive Date: 20041008
  Receipt Date: 20040917
  Transmission Date: 20050328
  Serious: Yes (Life-Threatening)
  Sender: FDA-Public Use
  Company Number: GB-GLAXOSMITHKLINE-B0345688A

PATIENT
  Age: 27 Year
  Sex: Male
  Weight: 87 kg

DRUGS (1)
  1. ZYBAN [Suspect]
     Indication: SMOKING CESSATION THERAPY
     Dosage: 150MG TWICE PER DAY
     Route: 048
     Dates: start: 20040331, end: 20040409

REACTIONS (4)
  - EYE ROLLING [None]
  - LOSS OF CONSCIOUSNESS [None]
  - ROAD TRAFFIC ACCIDENT [None]
  - STARING [None]
